FAERS Safety Report 10084185 (Version 2)
Quarter: 2014Q2

REPORT INFORMATION
  Report Type: Spontaneous
  Country: US (occurrence: US)
  Receive Date: 20140417
  Receipt Date: 20140506
  Transmission Date: 20141212
  Serious: Yes (Other)
  Sender: FDA-Public Use
  Company Number: US-BEH-2014041769

PATIENT
  Age: 44 Year
  Sex: Female

DRUGS (2)
  1. BERINERT [Suspect]
     Indication: HEREDITARY ANGIOEDEMA
     Route: 042
     Dates: start: 20110124
  2. BERINERT [Suspect]
     Indication: ENZYME ABNORMALITY
     Route: 042
     Dates: start: 20110124

REACTIONS (1)
  - Hereditary angioedema [Recovered/Resolved]
